FAERS Safety Report 25528214 (Version 1)
Quarter: 2025Q3

REPORT INFORMATION
  Report Type: Spontaneous
  Country: EU (occurrence: EU)
  Receive Date: 20250708
  Receipt Date: 20250708
  Transmission Date: 20251021
  Serious: Yes (Other)
  Sender: RANBAXY
  Company Number: EU-SUN PHARMACEUTICAL INDUSTRIES LTD-2025RR-515638

PATIENT
  Age: 50 Year
  Sex: Female

DRUGS (9)
  1. GEMCITABINE [Suspect]
     Active Substance: GEMCITABINE
     Indication: Peripheral T-cell lymphoma unspecified recurrent
     Route: 065
     Dates: start: 202110, end: 202112
  2. OXALIPLATIN [Suspect]
     Active Substance: OXALIPLATIN
     Indication: Peripheral T-cell lymphoma unspecified recurrent
     Route: 065
     Dates: start: 202110, end: 202112
  3. VINCRISTINE [Suspect]
     Active Substance: VINCRISTINE
     Indication: Peripheral T-cell lymphoma unspecified refractory
     Route: 065
     Dates: start: 202008, end: 202011
  4. MYCOPHENOLIC ACID [Suspect]
     Active Substance: MYCOPHENOLIC ACID
     Indication: Prophylaxis against graft versus host disease
     Route: 065
  5. DOXORUBICIN [Suspect]
     Active Substance: DOXORUBICIN
     Indication: Peripheral T-cell lymphoma unspecified recurrent
     Route: 065
     Dates: start: 202008, end: 202011
  6. PREDNISONE [Suspect]
     Active Substance: PREDNISONE
     Indication: Peripheral T-cell lymphoma unspecified recurrent
     Route: 065
     Dates: start: 202008, end: 202011
  7. CYCLOPHOSPHAMIDE [Suspect]
     Active Substance: CYCLOPHOSPHAMIDE
     Indication: Peripheral T-cell lymphoma unspecified recurrent
     Route: 065
     Dates: start: 202008, end: 202011
  8. ETOPOSIDE [Suspect]
     Active Substance: ETOPOSIDE
     Indication: Peripheral T-cell lymphoma unspecified recurrent
     Route: 065
     Dates: start: 202008, end: 202011
  9. CYCLOSPORINE [Suspect]
     Active Substance: CYCLOSPORINE
     Indication: Prophylaxis against graft versus host disease
     Route: 065

REACTIONS (4)
  - Therapeutic product effect incomplete [Recovering/Resolving]
  - Neoplasm progression [Recovering/Resolving]
  - Sepsis [Recovering/Resolving]
  - Fungal infection [Recovering/Resolving]
